FAERS Safety Report 20338380 (Version 1)
Quarter: 2022Q1

REPORT INFORMATION
  Report Type: Report from Study
  Country: BR (occurrence: BR)
  Receive Date: 20220115
  Receipt Date: 20220115
  Transmission Date: 20220424
  Serious: Yes (Hospitalization, Disabling, Other)
  Sender: FDA-Public Use
  Company Number: BR-NOVARTISPH-PHHY2019BR191941

PATIENT
  Age: 72 Year
  Sex: Male

DRUGS (3)
  1. ENTRESTO [Suspect]
     Active Substance: SACUBITRIL\VALSARTAN
     Indication: Cardiac failure
     Dosage: 1 DOSAGE FORM (49 MG SACUBITRIL/ 51 MG VALSARTAN)
     Route: 065
  2. ENTRESTO [Suspect]
     Active Substance: SACUBITRIL\VALSARTAN
     Dosage: 1 DOSAGE FORM (97 MG SACUBITRIL/ 103 MG VALSARTAN, 3 YEARS AGO)
     Route: 065
  3. LOSARTAN [Suspect]
     Active Substance: LOSARTAN
     Indication: Product used for unknown indication
     Dosage: UNK
     Route: 065
     Dates: start: 2015

REACTIONS (16)
  - Coma [Unknown]
  - Embolic stroke [Unknown]
  - Hemiplegia [Unknown]
  - Balance disorder [Unknown]
  - Apnoea [Unknown]
  - Haemorrhagic stroke [Recovered/Resolved with Sequelae]
  - Pneumonia [Unknown]
  - Cognitive disorder [Unknown]
  - Pulmonary fibrosis [Recovered/Resolved]
  - Somnolence [Recovered/Resolved]
  - Somnolence [Recovered/Resolved]
  - Blood pressure decreased [Recovered/Resolved]
  - Blood pressure decreased [Recovered/Resolved]
  - Gait inability [Unknown]
  - Secretion discharge [Unknown]
  - Cough [Unknown]

NARRATIVE: CASE EVENT DATE: 20171220
